FAERS Safety Report 5756707-7 (Version None)
Quarter: 2008Q2

REPORT INFORMATION
  Report Type: 
  Country: None (occurrence: None)
  Receive Date: 20080603
  Receipt Date: 20080528
  Transmission Date: 20081010
  Serious: Yes (Other)
  Sender: FDA-Public Use
  Company Number: US-ROCHE-538222

PATIENT
  Sex: Male
  Weight: 68 kg

DRUGS (6)
  1. FUZEON [Suspect]
     Route: 058
  2. FUZEON [Suspect]
     Route: 058
     Dates: start: 20071130
  3. DARUNAVIR [Concomitant]
  4. RALTEGRAVIR [Concomitant]
  5. BACTRIM DS [Concomitant]
  6. BACTRIM DS [Concomitant]

REACTIONS (6)
  - INJECTION SITE ERYTHEMA [None]
  - INJECTION SITE INDURATION [None]
  - INJECTION SITE PAIN [None]
  - INJECTION SITE PRURITUS [None]
  - MYALGIA [None]
  - PARAESTHESIA [None]
